FAERS Safety Report 18164883 (Version 8)
Quarter: 2021Q2

REPORT INFORMATION
  Report Type: Report from Study
  Country: US (occurrence: US)
  Receive Date: 20200818
  Receipt Date: 20210625
  Transmission Date: 20210717
  Serious: Yes (Hospitalization, Other)
  Sender: FDA-Public Use
  Company Number: US-SHIRE-US202026264

PATIENT
  Age: 67 Year
  Sex: Female
  Weight: 64.99 kg

DRUGS (12)
  1. TEDUGLUTIDE [Suspect]
     Active Substance: TEDUGLUTIDE
     Indication: DIARRHOEA
     Dosage: 0.261 MILLILITER, QD
     Route: 058
  2. TEDUGLUTIDE [Suspect]
     Active Substance: TEDUGLUTIDE
     Indication: MALABSORPTION
     Dosage: 0.25 MILLILITER, QD
     Route: 058
  3. TEDUGLUTIDE [Suspect]
     Active Substance: TEDUGLUTIDE
     Indication: MALABSORPTION
     Dosage: 0.25 MILLILITER, QD
     Route: 058
  4. TEDUGLUTIDE [Suspect]
     Active Substance: TEDUGLUTIDE
     Indication: MALABSORPTION
     Dosage: 0.25 MILLILITER, QD
     Route: 058
  5. TEDUGLUTIDE [Suspect]
     Active Substance: TEDUGLUTIDE
     Indication: MALABSORPTION
     Dosage: 0.25 MILLILITER, QD
     Route: 058
  6. TEDUGLUTIDE [Suspect]
     Active Substance: TEDUGLUTIDE
     Indication: SHORT-BOWEL SYNDROME
     Dosage: 0.325 UNK , QD
     Route: 058
     Dates: start: 20190320
  7. TEDUGLUTIDE [Suspect]
     Active Substance: TEDUGLUTIDE
     Indication: SHORT-BOWEL SYNDROME
     Dosage: 0.325 UNK , QD
     Route: 058
     Dates: start: 20190320
  8. TEDUGLUTIDE [Suspect]
     Active Substance: TEDUGLUTIDE
     Indication: SHORT-BOWEL SYNDROME
     Dosage: 0.325 UNK , QD
     Route: 058
     Dates: start: 20190320
  9. TEDUGLUTIDE [Suspect]
     Active Substance: TEDUGLUTIDE
     Indication: DIARRHOEA
     Dosage: 0.261 MILLILITER, QD
     Route: 058
  10. TEDUGLUTIDE [Suspect]
     Active Substance: TEDUGLUTIDE
     Indication: DIARRHOEA
     Dosage: 0.261 MILLILITER, QD
     Route: 058
  11. TEDUGLUTIDE [Suspect]
     Active Substance: TEDUGLUTIDE
     Indication: SHORT-BOWEL SYNDROME
     Dosage: 0.325 UNK , QD
     Route: 058
     Dates: start: 20190320
  12. TEDUGLUTIDE [Suspect]
     Active Substance: TEDUGLUTIDE
     Indication: DIARRHOEA
     Dosage: 0.261 MILLILITER, QD
     Route: 058

REACTIONS (12)
  - Expired product administered [Unknown]
  - Oropharyngeal pain [Recovering/Resolving]
  - Abdominal distension [Unknown]
  - Urinary tract infection [Unknown]
  - Intestinal obstruction [Recovered/Resolved]
  - Diarrhoea [Not Recovered/Not Resolved]
  - Abdominal discomfort [Unknown]
  - Vomiting [Unknown]
  - Dehydration [Unknown]
  - Flatulence [Unknown]
  - Infection [Not Recovered/Not Resolved]
  - Clostridium difficile colitis [Recovering/Resolving]

NARRATIVE: CASE EVENT DATE: 20200727
